FAERS Safety Report 15344305 (Version 3)
Quarter: 2018Q4

REPORT INFORMATION
  Report Type: Spontaneous
  Country: US (occurrence: US)
  Receive Date: 20180903
  Receipt Date: 20181024
  Transmission Date: 20190204
  Serious: No
  Sender: FDA-Public Use
  Company Number: US-009507513-1808USA003870

PATIENT
  Age: 17 Year
  Sex: Female
  Weight: 64.85 kg

DRUGS (2)
  1. WELLBUTRIN [Concomitant]
     Active Substance: BUPROPION HYDROCHLORIDE
     Dosage: UNK
  2. NEXPLANON [Suspect]
     Active Substance: ETONOGESTREL
     Indication: CONTRACEPTION
     Dosage: 3 YEAR IMPLANT, LEFT ARM
     Route: 059
     Dates: start: 20180225

REACTIONS (1)
  - Amenorrhoea [Recovered/Resolved]

NARRATIVE: CASE EVENT DATE: 201802
